FAERS Safety Report 25827884 (Version 1)
Quarter: 2025Q3

REPORT INFORMATION
  Report Type: Spontaneous
  Country: US (occurrence: US)
  Receive Date: 20250921
  Receipt Date: 20250921
  Transmission Date: 20251020
  Serious: Yes (Other)
  Sender: UNICHEM
  Company Number: US-UNICHEM LABORATORIES LIMITED-UNI-2025-US-003264

PATIENT

DRUGS (3)
  1. LAMOTRIGINE [Suspect]
     Active Substance: LAMOTRIGINE
     Indication: Epilepsy
     Route: 065
  2. LEVETIRACETAM [Concomitant]
     Active Substance: LEVETIRACETAM
     Indication: Epilepsy
     Route: 065
  3. GABAPENTIIN [Concomitant]
     Indication: Epilepsy
     Route: 065

REACTIONS (11)
  - Blister [Unknown]
  - Encephalopathy [Unknown]
  - Toxicity to various agents [Unknown]
  - Intentional overdose [Unknown]
  - Seizure [Unknown]
  - Hallucination, visual [Recovered/Resolved]
  - Mydriasis [Unknown]
  - Eye movement disorder [Recovered/Resolved]
  - Mobility decreased [Recovered/Resolved]
  - Confusional state [Recovered/Resolved]
  - Aggression [Unknown]
